FAERS Safety Report 13072191 (Version 1)
Quarter: 2016Q4

REPORT INFORMATION
  Report Type: Spontaneous
  Country: FR (occurrence: FR)
  Receive Date: 20161229
  Receipt Date: 20161229
  Transmission Date: 20170207
  Serious: Yes (Hospitalization)
  Sender: FDA-Public Use
  Company Number: FR-BAYER-2016-243100

PATIENT
  Age: 73 Year
  Sex: Male

DRUGS (11)
  1. CIFLOX 750 MG [Suspect]
     Active Substance: CIPROFLOXACIN
     Indication: LUNG INFECTION
     Dosage: 750 MG, BID
     Route: 048
     Dates: start: 20160923, end: 20160929
  2. PANTOPRAZOLE [Concomitant]
     Active Substance: PANTOPRAZOLE SODIUM
     Dosage: 20 MG, QD
     Route: 048
  3. CERIS [Concomitant]
     Active Substance: TROSPIUM CHLORIDE
     Dosage: 1 DF, QD
     Route: 048
  4. PREVISCAN [Concomitant]
     Active Substance: FLUINDIONE
     Dosage: 1.25 DF, QD
     Route: 048
  5. BUDESONIDE. [Concomitant]
     Active Substance: BUDESONIDE
     Dosage: 400 ?G, BID
     Route: 055
  6. CEFEPIME [Suspect]
     Active Substance: CEFEPIME HYDROCHLORIDE
     Indication: LUNG INFECTION
     Dosage: 2 G, TID
     Route: 048
     Dates: start: 20160920, end: 20161001
  7. TARDYFERON [Concomitant]
     Active Substance: FERROUS SULFATE
     Dosage: 1 DF, QD
     Route: 048
  8. FORMOTEROL [Concomitant]
     Active Substance: FORMOTEROL
     Dosage: 12 ?G, BID
     Route: 055
  9. FLECAINE [Concomitant]
     Active Substance: FLECAINIDE
     Dosage: 100 MG, QD
     Route: 048
  10. XATRAL SR [Concomitant]
     Active Substance: ALFUZOSIN
     Dosage: 1 DF, QD
     Route: 048
  11. SPIRIVA [Concomitant]
     Active Substance: TIOTROPIUM BROMIDE MONOHYDRATE
     Dosage: 18 ?G, QD
     Route: 055

REACTIONS (4)
  - Confusional state [Recovered/Resolved with Sequelae]
  - Logorrhoea [Recovered/Resolved with Sequelae]
  - Disorientation [Recovered/Resolved with Sequelae]
  - Agitation [Recovered/Resolved with Sequelae]

NARRATIVE: CASE EVENT DATE: 20160929
